FAERS Safety Report 6199774-1 (Version None)
Quarter: 2009Q2

REPORT INFORMATION
  Report Type: 
  Country: None (occurrence: None)
  Receive Date: 20090519
  Receipt Date: 20090504
  Transmission Date: 20091009
  Serious: Yes (Other)
  Sender: FDA-Public Use
  Company Number: 2009S1008034

PATIENT
  Sex: Female

DRUGS (2)
  1. ATENOLOL [Suspect]
     Indication: ANGINA PECTORIS
     Dosage: 50 MG;BAILY;ORAL
     Route: 048
     Dates: start: 20081201
  2. LO-TEN [Concomitant]

REACTIONS (4)
  - ANGINA PECTORIS [None]
  - ASTHENIA [None]
  - CONDITION AGGRAVATED [None]
  - DYSPNOEA [None]
